FAERS Safety Report 13790419 (Version 3)
Quarter: 2017Q3

REPORT INFORMATION
  Report Type: Report from Study
  Country: US (occurrence: US)
  Receive Date: 20170725
  Receipt Date: 20170904
  Transmission Date: 20171127
  Serious: No
  Sender: FDA-Public Use
  Company Number: US-SHIRE-US201715389

PATIENT
  Age: 10 Year
  Sex: Male

DRUGS (1)
  1. HUMAN NORMAL IMMUNOGLOBULIN; LIQUID [Suspect]
     Active Substance: HUMAN IMMUNOGLOBULIN G
     Indication: PRIMARY IMMUNODEFICIENCY SYNDROME
     Dosage: UNKNOWN
     Route: 058

REACTIONS (8)
  - Nausea [Unknown]
  - Dizziness [Unknown]
  - Pain [Unknown]
  - Infusion site swelling [Unknown]
  - Dermal absorption impaired [Unknown]
  - Infusion site haemorrhage [Unknown]
  - Headache [Unknown]
  - Infusion site pain [Unknown]

NARRATIVE: CASE EVENT DATE: 20170710
